FAERS Safety Report 5761535-2 (Version None)
Quarter: 2008Q2

REPORT INFORMATION
  Report Type: 
  Country: None (occurrence: None)
  Receive Date: 20080606
  Receipt Date: 20080529
  Transmission Date: 20081010
  Serious: Yes (Hospitalization)
  Sender: FDA-Public Use
  Company Number: AU-ABBOTT-08P-008-0453067-00

PATIENT
  Age: 15 Year
  Sex: Male
  Weight: 69 kg

DRUGS (11)
  1. SEVOFLURANE [Suspect]
     Indication: ANAESTHESIA
     Route: 055
  2. ACETAMINOPHEN [Suspect]
     Indication: ANALGESIA
     Route: 042
  3. FENTANYL TRANSDERMAL SYSTEM [Suspect]
     Indication: ANAESTHESIA
     Route: 050
  4. MIDAZOLAM HCL [Suspect]
     Indication: ANAESTHESIA
     Route: 042
  5. NITROUS OXIDE [Suspect]
     Indication: ANAESTHESIA
     Route: 055
  6. PROPOFOL [Suspect]
     Indication: ANAESTHESIA
     Route: 042
  7. PARECOXIB SODIUM [Suspect]
     Indication: ANALGESIA
     Route: 065
  8. OXYGEN [Suspect]
     Indication: ANAESTHESIA
     Dosage: NOT REPORTED
  9. MORPHINE [Concomitant]
     Indication: ANALGESIA
     Dosage: 20 ML IN DIVDED DOSES
     Route: 065
  10. SALBUTAMOL SULFATE [Concomitant]
     Indication: ASTHMA
     Dosage: NOT REPORTED
     Route: 055
  11. SERATIDE [Concomitant]
     Indication: ASTHMA
     Dosage: NOT REPORTED
     Route: 055

REACTIONS (1)
  - MIGRAINE WITH AURA [None]
